FAERS Safety Report 12924990 (Version 1)
Quarter: 2016Q4

REPORT INFORMATION
  Report Type: Spontaneous
  Country: DE (occurrence: DE)
  Receive Date: 20161108
  Receipt Date: 20161108
  Transmission Date: 20170207
  Serious: Yes (Congenital Anomaly, Other)
  Sender: FDA-Public Use
  Company Number: DE-ALLERGAN-1674836US

PATIENT
  Age: 1 Day
  Sex: Male

DRUGS (1)
  1. CITALOPRAM HYDROBROMIDE - BP [Suspect]
     Active Substance: CITALOPRAM HYDROBROMIDE
     Indication: DEPRESSION
     Dosage: 20 MG, QD
     Route: 064
     Dates: start: 20160109, end: 20160910

REACTIONS (9)
  - Congenital choroid plexus cyst [Not Recovered/Not Resolved]
  - Neonatal hypoxia [Recovered/Resolved]
  - Selective eating disorder [Recovered/Resolved]
  - Bradycardia neonatal [Recovered/Resolved]
  - Pulmonary artery stenosis [Not Recovered/Not Resolved]
  - Cryptorchism [Not Recovered/Not Resolved]
  - Respiratory disorder neonatal [Recovered/Resolved]
  - Temperature regulation disorder [Recovered/Resolved]
  - Foetal exposure during pregnancy [Unknown]

NARRATIVE: CASE EVENT DATE: 20160910
